FAERS Safety Report 14048603 (Version 3)
Quarter: 2018Q2

REPORT INFORMATION
  Report Type: Report from Study
  Country: None (occurrence: JP)
  Receive Date: 20171005
  Receipt Date: 20180504
  Transmission Date: 20180711
  Serious: Yes (Life-Threatening, Hospitalization, Other)
  Sender: FDA-Public Use
  Company Number: JP-BAUSCH-BL-2017-028665

PATIENT
  Age: 46 Year
  Sex: Female
  Weight: 60 kg

DRUGS (13)
  1. LANSOPRAZOLE OD [Concomitant]
     Active Substance: LANSOPRAZOLE
     Indication: PUSTULAR PSORIASIS
     Route: 048
     Dates: start: 20170928
  2. OLOPATADINE HYDROCHLORIDE. [Concomitant]
     Active Substance: OLOPATADINE HYDROCHLORIDE
     Indication: PUSTULAR PSORIASIS
     Route: 048
     Dates: start: 20170930, end: 20171006
  3. CALONAL [Concomitant]
     Active Substance: ACETAMINOPHEN
     Indication: PUSTULAR PSORIASIS
     Route: 048
     Dates: end: 20171108
  4. FUROSEMIDE. [Concomitant]
     Active Substance: FUROSEMIDE
     Indication: PRODUCT USED FOR UNKNOWN INDICATION
     Dates: start: 20171001, end: 20171005
  5. LUNESTA [Concomitant]
     Active Substance: ESZOPICLONE
     Indication: PRODUCT USED FOR UNKNOWN INDICATION
     Route: 048
     Dates: start: 20171002
  6. EPINASTINE. [Concomitant]
     Active Substance: EPINASTINE HYDROCHLORIDE
     Indication: PUSTULAR PSORIASIS
     Route: 048
     Dates: end: 20171005
  7. WHITE PETROLATUM [Concomitant]
     Active Substance: PETROLATUM
     Indication: PRODUCT USED FOR UNKNOWN INDICATION
     Dosage: EXTRA FORMULATION
  8. LOXONIN [Concomitant]
     Active Substance: LOXOPROFEN SODIUM
     Indication: PRODUCT USED FOR UNKNOWN INDICATION
     Dates: end: 20180427
  9. LUMICEF [Suspect]
     Active Substance: BRODALUMAB
     Indication: PUSTULAR PSORIASIS
     Dosage: SINGLE
     Route: 058
     Dates: start: 20170925, end: 20170925
  10. VOLTAREN [Concomitant]
     Active Substance: DICLOFENAC SODIUM
     Indication: PUSTULAR PSORIASIS
     Route: 054
     Dates: start: 20170928, end: 20171015
  11. TIGASON [Concomitant]
     Active Substance: ETRETINATE
     Indication: PUSTULAR PSORIASIS
     Route: 048
     Dates: start: 20171018, end: 20171128
  12. ANFLAVATE OINTMENT [Concomitant]
     Indication: PRODUCT USED FOR UNKNOWN INDICATION
     Dates: start: 20171102
  13. REMICADE [Concomitant]
     Active Substance: INFLIXIMAB
     Indication: PUSTULAR PSORIASIS
     Route: 042
     Dates: start: 20171107

REACTIONS (8)
  - C-reactive protein increased [Recovering/Resolving]
  - Pyrexia [Recovered/Resolved]
  - Takayasu^s arteritis [Recovering/Resolving]
  - White blood cell count increased [Recovering/Resolving]
  - Arrhythmia [Recovered/Resolved]
  - Pleural effusion [Recovering/Resolving]
  - Pericardial effusion [Recovered/Resolved]
  - Pleurisy [Recovered/Resolved]

NARRATIVE: CASE EVENT DATE: 20170926
